FAERS Safety Report 15761683 (Version 2)
Quarter: 2018Q4

REPORT INFORMATION
  Report Type: Spontaneous
  Country: US (occurrence: US)
  Receive Date: 20181226
  Receipt Date: 20181227
  Transmission Date: 20190205
  Serious: Yes (Hospitalization)
  Sender: FDA-Public Use
  Company Number: US-ASTRAZENECA-2018SF69474

PATIENT
  Sex: Male

DRUGS (4)
  1. LUMOXITI [Suspect]
     Active Substance: MOXETUMOMAB PASUDOTOX-TDFK
     Indication: HAIRY CELL LEUKAEMIA
     Dosage: UNKNOWN
     Route: 042
     Dates: start: 201812
  2. CLOFARABINE. [Concomitant]
     Active Substance: CLOFARABINE
  3. RITUXAN [Concomitant]
     Active Substance: RITUXIMAB
  4. ZELBORAF [Concomitant]
     Active Substance: VEMURAFENIB

REACTIONS (1)
  - Capillary leak syndrome [Not Recovered/Not Resolved]
